FAERS Safety Report 17741586 (Version 1)
Quarter: 2020Q2

REPORT INFORMATION
  Report Type: Report from Study
  Country: US (occurrence: US)
  Receive Date: 20200504
  Receipt Date: 20200504
  Transmission Date: 20200714
  Serious: Yes (Other)
  Sender: FDA-Public Use
  Company Number: US-ASTRAZENECA-2019SF10640

PATIENT
  Age: 80 Year
  Sex: Female
  Weight: 90.3 kg

DRUGS (9)
  1. METOPROLOL ER [Suspect]
     Active Substance: METOPROLOL SUCCINATE
     Indication: HYPERTENSION
     Route: 048
     Dates: start: 1999
  2. METOPROLOL ER [Suspect]
     Active Substance: METOPROLOL SUCCINATE
     Indication: SYNCOPE
     Dosage: 100.0MG UNKNOWN
     Route: 048
  3. BYDUREON BCISE [Suspect]
     Active Substance: EXENATIDE
     Indication: TYPE 2 DIABETES MELLITUS
     Route: 058
     Dates: start: 20190626, end: 20191119
  4. METOPROLOL ER [Suspect]
     Active Substance: METOPROLOL SUCCINATE
     Indication: HYPERTENSION
     Dosage: 100.0MG UNKNOWN
     Route: 048
  5. SYNTHROID [Concomitant]
     Active Substance: LEVOTHYROXINE SODIUM
     Indication: HYPOTHYROIDISM
     Route: 048
     Dates: start: 1969
  6. CALCITRIOL. [Concomitant]
     Active Substance: CALCITRIOL
     Indication: PARATHYROID DISORDER
     Dosage: 0.5 MCG DAILY AT NIGHT, AND 0.5 MCG THREE TIMES PER WEEK IN THE MORNING
     Route: 048
     Dates: start: 2004
  7. RALOXIFENE HCL [Concomitant]
     Active Substance: RALOXIFENE
     Indication: BONE DISORDER
     Route: 048
     Dates: start: 2017
  8. TURMERIC [Concomitant]
     Active Substance: HERBALS\TURMERIC
     Indication: ARTHRALGIA
     Route: 048
     Dates: start: 2017
  9. METOPROLOL ER [Suspect]
     Active Substance: METOPROLOL SUCCINATE
     Indication: SYNCOPE
     Route: 048
     Dates: start: 1999

REACTIONS (8)
  - Type 2 diabetes mellitus [Unknown]
  - Vision blurred [Recovered/Resolved]
  - Blood magnesium decreased [Unknown]
  - Needle issue [Unknown]
  - Injection site pruritus [Not Recovered/Not Resolved]
  - Drug delivery system issue [Unknown]
  - Blood glucose increased [Not Recovered/Not Resolved]
  - Injection site mass [Not Recovered/Not Resolved]

NARRATIVE: CASE EVENT DATE: 2019
